FAERS Safety Report 5902007-1 (Version None)
Quarter: 2008Q3

REPORT INFORMATION
  Report Type: 
  Country: None (occurrence: None)
  Receive Date: 20080909
  Receipt Date: 20080512
  Transmission Date: 20090109
  Serious: Yes (Other)
  Sender: FDA-Public Use
  Company Number: US-WYE-H04087308

PATIENT
  Age: 70 Year
  Sex: Female

DRUGS (2)
  1. ADVIL [Suspect]
     Indication: PAIN
     Dosage: 1 LIQUI-GEL AS NEEDED, ORAL ; 1 LIQUI-GEL AS NEEDED, ORAL
     Route: 048
     Dates: start: 20080101, end: 20080101
  2. ADVIL [Suspect]
     Indication: PAIN
     Dosage: 1 LIQUI-GEL AS NEEDED, ORAL ; 1 LIQUI-GEL AS NEEDED, ORAL
     Route: 048
     Dates: start: 20080511, end: 20080511

REACTIONS (2)
  - FEELING JITTERY [None]
  - INSOMNIA [None]
